FAERS Safety Report 23078664 (Version 1)
Quarter: 2023Q4

REPORT INFORMATION
  Report Type: Spontaneous
  Country: US (occurrence: None)
  Receive Date: 20231017
  Receipt Date: 20231017
  Transmission Date: 20240110
  Serious: No
  Sender: FDA-Public Use
  Company Number: None

PATIENT
  Age: 63 Year
  Sex: Male

DRUGS (1)
  1. TECARTUS [Suspect]
     Active Substance: BREXUCABTAGENE AUTOLEUCEL

REACTIONS (8)
  - Cytokine release syndrome [None]
  - Pyrexia [None]
  - Headache [None]
  - Immune effector cell-associated neurotoxicity syndrome [None]
  - Aphasia [None]
  - Mental status changes [None]
  - Agitation [None]
  - Restlessness [None]

NARRATIVE: CASE EVENT DATE: 20230622
